FAERS Safety Report 11046501 (Version 1)
Quarter: 2015Q2

REPORT INFORMATION
  Report Type: Spontaneous
  Country: US (occurrence: US)
  Receive Date: 20150420
  Receipt Date: 20150420
  Transmission Date: 20150821
  Serious: No
  Sender: FDA-Public Use
  Company Number: US-TEVA-468551USA

PATIENT
  Sex: Male

DRUGS (4)
  1. NICOTINIC ACID [Suspect]
     Active Substance: NIACIN
     Indication: BLOOD CHOLESTEROL INCREASED
     Dosage: 1000 MILLIGRAM DAILY;
     Dates: start: 201311
  2. NICOTINIC ACID [Suspect]
     Active Substance: NIACIN
     Indication: HIGH DENSITY LIPOPROTEIN DECREASED
  3. NICOTINIC ACID [Suspect]
     Active Substance: NIACIN
     Indication: LOW DENSITY LIPOPROTEIN
  4. NICOTINIC ACID [Suspect]
     Active Substance: NIACIN
     Indication: BLOOD TRIGLYCERIDES INCREASED

REACTIONS (4)
  - Burning sensation [Unknown]
  - Pruritus [Unknown]
  - Flushing [Unknown]
  - Product physical issue [Unknown]
